FAERS Safety Report 20733029 (Version 1)
Quarter: 2022Q2

REPORT INFORMATION
  Report Type: Spontaneous
  Country: US (occurrence: None)
  Receive Date: 20220421
  Receipt Date: 20220421
  Transmission Date: 20220721
  Serious: No
  Sender: FDA-Public Use
  Company Number: 2022A146145

PATIENT
  Sex: Female
  Weight: 72.6 kg

DRUGS (1)
  1. BUDESONIDE\FORMOTEROL\GLYCOPYRRONIUM [Suspect]
     Active Substance: BUDESONIDE\FORMOTEROL\GLYCOPYRRONIUM
     Indication: Condition aggravated
     Dosage: 2,TWO TIMES A DAY
     Route: 055
     Dates: start: 20220304

REACTIONS (5)
  - Tongue discomfort [Recovered/Resolved]
  - Glossodynia [Recovered/Resolved]
  - Upper respiratory tract infection [Recovered/Resolved]
  - Tongue disorder [Recovered/Resolved]
  - Throat irritation [Recovered/Resolved]
